FAERS Safety Report 19246870 (Version 1)
Quarter: 2021Q2

REPORT INFORMATION
  Report Type: Spontaneous
  Country: US (occurrence: US)
  Receive Date: 20210512
  Receipt Date: 20210512
  Transmission Date: 20210717
  Serious: No
  Sender: FDA-Public Use
  Company Number: US-UCBSA-2020010536

PATIENT
  Age: 61 Year
  Sex: Female
  Weight: 150 kg

DRUGS (2)
  1. CIMZIA [Suspect]
     Active Substance: CERTOLIZUMAB PEGOL
     Indication: PSORIASIS
     Dosage: DOSE INCREASED WEEKLY
     Dates: start: 202002
  2. CIMZIA [Suspect]
     Active Substance: CERTOLIZUMAB PEGOL
     Indication: PSORIATIC ARTHROPATHY
     Dosage: 400 MILLIGRAM, WEEKLY (QW)
     Route: 058
     Dates: start: 20190504

REACTIONS (3)
  - Off label use [Unknown]
  - Candida infection [Not Recovered/Not Resolved]
  - Oral infection [Unknown]

NARRATIVE: CASE EVENT DATE: 202003
